FAERS Safety Report 7170866-3 (Version None)
Quarter: 2010Q4

REPORT INFORMATION
  Report Type: 
  Country: None (occurrence: None)
  Receive Date: 20101217
  Receipt Date: 20101015
  Transmission Date: 20110411
  Serious: Yes (Other)
  Sender: FDA-Public Use
  Company Number: AU-JNJFOC-20101205558

PATIENT
  Sex: Female
  Weight: 74 kg

DRUGS (17)
  1. GOLIMUMAB [Suspect]
     Indication: RHEUMATOID ARTHRITIS
     Route: 058
  2. GOLIMUMAB [Suspect]
     Route: 058
  3. METHOTREXATE [Suspect]
     Indication: RHEUMATOID ARTHRITIS
     Route: 048
  4. METHOTREXATE [Suspect]
     Route: 048
  5. FOLIC ACID [Concomitant]
     Route: 048
  6. ACETAMINOPHEN [Concomitant]
     Route: 048
  7. MODURETIC 5-50 [Concomitant]
     Route: 048
  8. IBRUPROFEN [Concomitant]
     Route: 048
  9. IBRUPROFEN [Concomitant]
     Route: 048
  10. IBRUPROFEN [Concomitant]
     Route: 048
  11. OSTEVIT-D [Concomitant]
     Route: 048
  12. METHOTREXATE [Concomitant]
     Route: 048
  13. NEXIUM [Concomitant]
     Route: 048
  14. IBUPROFEN [Concomitant]
     Route: 048
  15. DULOXETINE HYDROCHLORIDE [Concomitant]
     Route: 048
  16. BACTRIM [Concomitant]
     Route: 061
  17. PREDNISOLONE [Concomitant]
     Route: 048

REACTIONS (2)
  - BOWEN'S DISEASE [None]
  - SQUAMOUS CELL CARCINOMA [None]
